FAERS Safety Report 10248825 (Version 1)
Quarter: 2014Q2

REPORT INFORMATION
  Report Type: Spontaneous
  Country: US (occurrence: None)
  Receive Date: 20140619
  Receipt Date: 20140619
  Transmission Date: 20141212
  Serious: No
  Sender: FDA-Public Use
  Company Number: None

PATIENT
  Age: 50 Year
  Sex: Female
  Weight: 64.41 kg

DRUGS (7)
  1. CRESTOR [Suspect]
     Dosage: 1 PILL EVERY DAY BY MOUTH
     Route: 048
     Dates: start: 20131014, end: 20140401
  2. DIAZEPAM [Concomitant]
  3. IMITREX [Concomitant]
  4. VALOTREN GEL [Concomitant]
  5. VITAMIN D [Concomitant]
  6. CALCIUM [Concomitant]
  7. MAGNESIUM [Concomitant]

REACTIONS (3)
  - Abdominal discomfort [None]
  - Deafness [None]
  - Tinnitus [None]
